FAERS Safety Report 24380569 (Version 2)
Quarter: 2025Q2

REPORT INFORMATION
  Report Type: Spontaneous
  Country: US (occurrence: US)
  Receive Date: 20240930
  Receipt Date: 20250420
  Transmission Date: 20250717
  Serious: No
  Sender: SANOFI AVENTIS
  Company Number: US-SA-2024SA276548

PATIENT
  Sex: Male

DRUGS (6)
  1. DUPIXENT [Suspect]
     Active Substance: DUPILUMAB
     Indication: Eczema
     Route: 058
     Dates: start: 20240828, end: 20240828
  2. DUPIXENT [Suspect]
     Active Substance: DUPILUMAB
     Dosage: 300 MG, QOW
     Dates: start: 2024
  3. CEFDINIR [Suspect]
     Active Substance: CEFDINIR
     Indication: Tympanic membrane perforation
     Route: 065
     Dates: start: 20250404, end: 20250413
  4. TACROLIMUS [Concomitant]
     Active Substance: TACROLIMUS
  5. TRIAMCINOLONE [Concomitant]
     Active Substance: TRIAMCINOLONE
  6. ADVAIR HFA [Concomitant]
     Active Substance: FLUTICASONE PROPIONATE\SALMETEROL XINAFOATE

REACTIONS (4)
  - Tympanic membrane perforation [Unknown]
  - Skin disorder [Recovering/Resolving]
  - Condition aggravated [Recovering/Resolving]
  - Incorrect dose administered [Unknown]

NARRATIVE: CASE EVENT DATE: 20240828
